FAERS Safety Report 16357435 (Version 1)
Quarter: 2019Q2

REPORT INFORMATION
  Report Type: Spontaneous
  Country: ES (occurrence: ES)
  Receive Date: 20190527
  Receipt Date: 20190527
  Transmission Date: 20190711
  Serious: Yes (Hospitalization)
  Sender: FDA-Public Use
  Company Number: ES-ELI_LILLY_AND_COMPANY-ES201905010887

PATIENT
  Age: 67 Year
  Sex: Female
  Weight: 87 kg

DRUGS (6)
  1. FORTECORTIN [DEXAMETHASONE ACETATE] [Interacting]
     Active Substance: DEXAMETHASONE ACETATE
     Dosage: 4 MG, DAILY
     Route: 042
     Dates: start: 20190416
  2. FORTECORTIN [DEXAMETHASONE ACETATE] [Interacting]
     Active Substance: DEXAMETHASONE ACETATE
     Dosage: 1 MG, DAILY
     Route: 048
     Dates: start: 20190418, end: 20190419
  3. FORTECORTIN [DEXAMETHASONE ACETATE] [Interacting]
     Active Substance: DEXAMETHASONE ACETATE
     Dosage: 4 MG, DAILY
     Route: 048
     Dates: start: 20190416
  4. HUMALOG [Suspect]
     Active Substance: INSULIN LISPRO
     Indication: DIABETES MELLITUS
     Dosage: UNK, UNKNOWN
     Route: 065
     Dates: start: 20180831
  5. FORTECORTIN [DEXAMETHASONE ACETATE] [Interacting]
     Active Substance: DEXAMETHASONE ACETATE
     Indication: GOUT
     Dosage: 4 MG, DAILY
     Route: 042
     Dates: start: 20190409
  6. VICTOZA [Interacting]
     Active Substance: LIRAGLUTIDE
     Indication: DIABETES MELLITUS INADEQUATE CONTROL
     Dosage: 1.2 MG, UNKNOWN
     Route: 058
     Dates: start: 20180721

REACTIONS (2)
  - Drug interaction [Unknown]
  - Diabetic ketoacidosis [Recovering/Resolving]

NARRATIVE: CASE EVENT DATE: 20190416
